FAERS Safety Report 14532366 (Version 2)
Quarter: 2018Q1

REPORT INFORMATION
  Report Type: Spontaneous
  Country: JP (occurrence: JP)
  Receive Date: 20180214
  Receipt Date: 20180321
  Transmission Date: 20180509
  Serious: No
  Sender: FDA-Public Use
  Company Number: JP-009507513-1706JPN001042J

PATIENT
  Age: 75 Year
  Sex: Male
  Weight: 69 kg

DRUGS (10)
  1. PROSTAL [Concomitant]
     Active Substance: CHLORMADINONE ACETATE
     Dosage: 25.0 MG, BID
     Route: 048
  2. SPIRONOLACTONE. [Concomitant]
     Active Substance: SPIRONOLACTONE
     Dosage: 25.0 MG, QD
     Route: 048
  3. DIART [Concomitant]
     Active Substance: AZOSEMIDE
     Dosage: 30.0 MG, QD
     Route: 048
  4. KEYTRUDA [Suspect]
     Active Substance: PEMBROLIZUMAB
     Indication: LUNG ADENOCARCINOMA
     Dosage: 200 MG, Q3W
     Route: 041
     Dates: start: 20170516
  5. CELECOX [Concomitant]
     Active Substance: CELECOXIB
     Indication: LUNG ADENOCARCINOMA
     Dosage: 100.0 MG, BID
     Route: 048
  6. NEXIUM [Concomitant]
     Active Substance: ESOMEPRAZOLE MAGNESIUM
     Dosage: 20.0 MG, QD
     Route: 048
  7. AMITIZA [Concomitant]
     Active Substance: LUBIPROSTONE
     Dosage: 24.0 MICROGRAM, QD
     Route: 048
  8. SENNOSIDE [Concomitant]
     Active Substance: SENNOSIDES
     Dosage: 12.0 MG, BID
     Route: 048
  9. URIEF [Concomitant]
     Active Substance: SILODOSIN
     Dosage: 4.0 MG, BID
     Route: 048
  10. TRIAZOLAM. [Concomitant]
     Active Substance: TRIAZOLAM
     Dosage: 25 MG, QD
     Route: 048

REACTIONS (3)
  - Pneumonitis [Not Recovered/Not Resolved]
  - Urticaria [Recovering/Resolving]
  - Dry skin [Not Recovered/Not Resolved]

NARRATIVE: CASE EVENT DATE: 20170608
